FAERS Safety Report 23817555 (Version 1)
Quarter: 2024Q2

REPORT INFORMATION
  Report Type: Spontaneous
  Country: PT (occurrence: PT)
  Receive Date: 20240505
  Receipt Date: 20240505
  Transmission Date: 20240716
  Serious: Yes (Other)
  Sender: FDA-Public Use
  Company Number: PT-PRINSTON PHARMACEUTICAL INC.-2024PRN00201

PATIENT
  Age: 44 Year
  Sex: Female

DRUGS (2)
  1. RISPERIDONE [Suspect]
     Active Substance: RISPERIDONE
     Indication: Schizophrenia
     Dosage: 2 MG
  2. RISPERIDONE [Suspect]
     Active Substance: RISPERIDONE
     Dosage: DOSE TITRATED TO 10 MG

REACTIONS (1)
  - Hepatotoxicity [Recovered/Resolved]
